FAERS Safety Report 18281505 (Version 1)
Quarter: 2020Q3

REPORT INFORMATION
  Report Type: Spontaneous
  Country: US (occurrence: US)
  Receive Date: 20200917
  Receipt Date: 20200917
  Transmission Date: 20201103
  Serious: Yes (Other)
  Sender: FDA-Public Use
  Company Number: None

PATIENT
  Age: 60 Year
  Sex: Female
  Weight: 55.8 kg

DRUGS (1)
  1. TRAMADOL TABLETS [Suspect]
     Active Substance: TRAMADOL HYDROCHLORIDE
     Indication: UMBILICAL HERNIA
     Route: 048
     Dates: start: 20200908, end: 20200915

REACTIONS (5)
  - Dysphagia [None]
  - Drug interaction [None]
  - Hypotension [None]
  - Dizziness [None]
  - Behcet^s syndrome [None]

NARRATIVE: CASE EVENT DATE: 20200913
